FAERS Safety Report 6251495-2 (Version None)
Quarter: 2009Q2

REPORT INFORMATION
  Report Type: 
  Country: None (occurrence: None)
  Receive Date: 20090630
  Receipt Date: 20090623
  Transmission Date: 20091009
  Serious: Yes (Other)
  Sender: FDA-Public Use
  Company Number: US-JNJCH-2009017436

PATIENT
  Age: 6 Year
  Sex: Female
  Weight: 20.9 kg

DRUGS (1)
  1. ZYRTEC [Suspect]
     Indication: HYPERSENSITIVITY
     Dosage: TEXT:1 TEASPOON ONCE DAILY ON AND OFF
     Route: 048

REACTIONS (1)
  - URINARY RETENTION [None]
